FAERS Safety Report 19122916 (Version 2)
Quarter: 2022Q2

REPORT INFORMATION
  Report Type: Spontaneous
  Country: US (occurrence: US)
  Receive Date: 20210412
  Receipt Date: 20220531
  Transmission Date: 20220720
  Serious: Yes (Other)
  Sender: FDA-Public Use
  Company Number: US-PFIZER INC-2020467186

PATIENT
  Age: 57 Year
  Sex: Female

DRUGS (2)
  1. XELJANZ XR [Suspect]
     Active Substance: TOFACITINIB CITRATE
     Dosage: 11 MG
     Dates: start: 20201107
  2. PREDNISONE [Concomitant]
     Active Substance: PREDNISONE
     Indication: Platelet count decreased
     Dosage: UNK

REACTIONS (2)
  - Systemic lupus erythematosus [Unknown]
  - White blood cell count decreased [Unknown]
